FAERS Safety Report 8801907 (Version 2)
Quarter: 2012Q4

REPORT INFORMATION
  Report Type: 
  Country: US (occurrence: US)
  Receive Date: 20120921
  Receipt Date: 20121016
  Transmission Date: 20130627
  Serious: No
  Sender: FDA-Public Use
  Company Number: US-PFIZER INC-2012232022

PATIENT
  Age: 69 Year
  Sex: Female
  Weight: 61.22 kg

DRUGS (7)
  1. PREMARIN [Suspect]
     Indication: HOT FLUSH
     Dosage: 0.625 mg, daily
     Route: 048
  2. PREMARIN [Suspect]
     Dosage: 0.3 mg, alternate day
     Route: 048
  3. PREMARIN [Suspect]
     Dosage: UNK
  4. PREMARIN [Suspect]
     Dosage: 0.3 mg, 1x/day
     Route: 048
  5. FOSAMAX [Suspect]
     Indication: OSTEOPOROSIS
     Dosage: UNK
     Dates: start: 2010
  6. SYNTHROID [Concomitant]
     Indication: THYROID DISORDER
     Dosage: 75 ug, daily
  7. MEVACOR [Concomitant]
     Indication: BLOOD CHOLESTEROL ABNORMAL
     Dosage: 20 mg, daily

REACTIONS (8)
  - Osteoporosis [Unknown]
  - Bone disorder [Unknown]
  - Spinal disorder [Unknown]
  - Musculoskeletal discomfort [Unknown]
  - Pain [Unknown]
  - Tooth disorder [Recovered/Resolved]
  - Jaw disorder [Recovered/Resolved]
  - Tooth loss [Unknown]
